FAERS Safety Report 14106389 (Version 1)
Quarter: 2017Q4

REPORT INFORMATION
  Report Type: Spontaneous
  Country: US (occurrence: None)
  Receive Date: 20171018
  Receipt Date: 20171018
  Transmission Date: 20180321
  Serious: Yes (Hospitalization)
  Sender: FDA-Public Use
  Company Number: None

PATIENT
  Age: 64 Year
  Sex: Male

DRUGS (5)
  1. PROCHLORPER [Concomitant]
  2. RYDAPT [Concomitant]
     Active Substance: MIDOSTAURIN
     Indication: MYELOID LEUKAEMIA
     Route: 048
     Dates: start: 20170804
  3. ACYCLOVIR. [Concomitant]
     Active Substance: ACYCLOVIR
  4. NOXAFIL [Concomitant]
     Active Substance: POSACONAZOLE
  5. CIPROFLOXACN [Concomitant]
     Active Substance: CIPROFLOXACIN

REACTIONS (2)
  - Neutropenia [None]
  - Pyrexia [None]
